FAERS Safety Report 8604792-7 (Version None)
Quarter: 2012Q3

REPORT INFORMATION
  Report Type: 
  Country: None (occurrence: None)
  Receive Date: 20120820
  Receipt Date: 20120810
  Transmission Date: 20120928
  Serious: Yes (Other)
  Sender: FDA-Public Use
  Company Number: CA-ELI_LILLY_AND_COMPANY-CA201208003411

PATIENT
  Age: 74 Year
  Sex: Female

DRUGS (15)
  1. NORVASC [Concomitant]
     Dosage: UNK, UNKNOWN
     Route: 065
  2. NEXIUM [Concomitant]
     Dosage: UNK, UNKNOWN
     Route: 065
  3. LIPITOR [Concomitant]
     Dosage: UNK, UNKNOWN
     Route: 065
  4. BISOPROLOL FUMARATE [Concomitant]
     Dosage: UNK, UNKNOWN
     Route: 065
  5. INDAPAMIDE [Concomitant]
     Dosage: UNK, UNKNOWN
     Route: 065
  6. BACLOFEN [Concomitant]
     Dosage: UNK, UNKNOWN
     Route: 065
  7. MULTI-VITAMIN [Concomitant]
     Dosage: UNK, UNKNOWN
     Route: 065
  8. VITAMIN D [Concomitant]
     Dosage: 1000 IU, UNKNOWN
     Route: 065
  9. ALTACE [Concomitant]
     Dosage: UNK, UNKNOWN
     Route: 065
  10. FORTEO [Suspect]
     Dosage: 20 UG, QOD
     Route: 058
     Dates: start: 20111101
  11. CELEBREX [Concomitant]
     Dosage: UNK, UNKNOWN
     Route: 065
  12. PREMARIN [Concomitant]
     Dosage: UNK, UNKNOWN
     Route: 065
  13. FORTEO [Suspect]
     Indication: OSTEOPOROSIS
     Dosage: UNK, UNKNOWN
     Route: 065
     Dates: start: 20100703, end: 20110723
  14. PROMETRIUM [Concomitant]
     Dosage: UNK, UNKNOWN
     Route: 065
  15. SYNTHROID [Concomitant]
     Dosage: UNK, UNKNOWN
     Route: 065

REACTIONS (1)
  - COLON CANCER STAGE I [None]
